FAERS Safety Report 12217347 (Version 1)
Quarter: 2016Q1

REPORT INFORMATION
  Report Type: Spontaneous
  Country: US (occurrence: None)
  Receive Date: 20160328
  Receipt Date: 20160328
  Transmission Date: 20160526
  Serious: Yes (Disabling)
  Sender: FDA-Public Use
  Company Number: None

PATIENT
  Age: 65 Year
  Sex: Female
  Weight: 97.52 kg

DRUGS (20)
  1. CIPROFLOXACIN HCL, 500MG TAB - CR500 [Suspect]
     Active Substance: CIPROFLOXACIN HYDROCHLORIDE
     Indication: DIVERTICULITIS
     Route: 048
     Dates: start: 20140614, end: 20140622
  2. PROAIR HFA [Concomitant]
     Active Substance: ALBUTEROL SULFATE
  3. MONTELUKAST [Concomitant]
     Active Substance: MONTELUKAST SODIUM
  4. METOPROLOL. [Concomitant]
     Active Substance: METOPROLOL
  5. TRAMADOL HCL [Concomitant]
     Active Substance: TRAMADOL HYDROCHLORIDE
  6. MULTI VITAMIN [Concomitant]
     Active Substance: VITAMINS
  7. DOCUSATE SODIUM. [Concomitant]
     Active Substance: DOCUSATE SODIUM
  8. FLUTCASONE PROPIONATE [Concomitant]
  9. CLARITIN [Concomitant]
     Active Substance: LORATADINE
  10. COQ10 [Concomitant]
     Active Substance: UBIDECARENONE
  11. LUMIGAN [Concomitant]
     Active Substance: BIMATOPROST
  12. FIBER SUPPLEMENT/FIBER LAXATIVE [Concomitant]
  13. LISINOPRIL HCTZ [Concomitant]
     Active Substance: HYDROCHLOROTHIAZIDE\LISINOPRIL
  14. LANSOPROZOLE [Concomitant]
  15. VITAMIN D3 [Concomitant]
     Active Substance: CHOLECALCIFEROL
  16. SIMVASTATIN. [Concomitant]
     Active Substance: SIMVASTATIN
  17. ADVAIR HFA [Concomitant]
     Active Substance: FLUTICASONE PROPIONATE\SALMETEROL XINAFOATE
  18. VOLTAREN [Concomitant]
     Active Substance: DICLOFENAC SODIUM
  19. CALCIUMVITA FUSION [Concomitant]
  20. VITAMIN B12 [Concomitant]
     Active Substance: CYANOCOBALAMIN

REACTIONS (5)
  - Tendon disorder [None]
  - Rash [None]
  - Muscle disorder [None]
  - Urine output decreased [None]
  - Nausea [None]

NARRATIVE: CASE EVENT DATE: 20140622
